FAERS Safety Report 6945630-8 (Version None)
Quarter: 2010Q3

REPORT INFORMATION
  Report Type: 
  Country: None (occurrence: None)
  Receive Date: 20100827
  Receipt Date: 20100817
  Transmission Date: 20110219
  Serious: Yes (Hospitalization)
  Sender: FDA-Public Use
  Company Number: FR-MERCK-1008FRA00055

PATIENT
  Age: 59 Year
  Sex: Male

DRUGS (5)
  1. VYTORIN [Suspect]
     Indication: HYPERCHOLESTEROLAEMIA
     Route: 048
  2. INFLUENZA VIRUS A SPLIT VIRION VACCINE INACTIVATED (H1N1) [Suspect]
     Route: 030
     Dates: start: 20091127
  3. ESOMEPRAZOLE MAGNESIUM [Suspect]
     Indication: GASTROOESOPHAGEAL REFLUX DISEASE
     Route: 048
  4. TAMSULOSIN HCL [Suspect]
     Indication: PROSTATIC ADENOMA
     Route: 048
  5. CORTICOSTEROIDS (UNSPECIFIED) [Concomitant]
     Indication: BONE PAIN
     Route: 048

REACTIONS (4)
  - COUGH [None]
  - DYSPNOEA EXERTIONAL [None]
  - RESTRICTIVE PULMONARY DISEASE [None]
  - SINUSITIS [None]
